FAERS Safety Report 6494763-1 (Version None)
Quarter: 2009Q4

REPORT INFORMATION
  Report Type: 
  Country: None (occurrence: None)
  Receive Date: 20091214
  Receipt Date: 20090331
  Transmission Date: 20100525
  Serious: No
  Sender: FDA-Public Use
  Company Number: US-BRISTOL-MYERS SQUIBB COMPANY-14556831

PATIENT
  Age: 64 Year
  Sex: Female

DRUGS (4)
  1. ABILIFY [Suspect]
     Indication: MAJOR DEPRESSION
     Dosage: STARTED WITH 2MG,THEN 5MG AND IN NOV08 INCREASED TO 10MG.
     Route: 048
     Dates: start: 20080901, end: 20090120
  2. SEROQUEL [Concomitant]
  3. ELAVIL [Concomitant]
  4. RITALIN [Concomitant]

REACTIONS (4)
  - DRY MOUTH [None]
  - MASTICATION DISORDER [None]
  - OROPHARYNGEAL BLISTERING [None]
  - SLEEP DISORDER [None]
